FAERS Safety Report 7527741-1 (Version None)
Quarter: 2011Q2

REPORT INFORMATION
  Report Type: 
  Country: None (occurrence: None)
  Receive Date: 20110527
  Receipt Date: 20110520
  Transmission Date: 20111010
  Serious: Yes (Other)
  Sender: FDA-Public Use
  Company Number: CIP11000806

PATIENT
  Sex: Male

DRUGS (9)
  1. ALL OTHER THERAPEUTIC PRODUCTS [Concomitant]
  2. LAMICTAL [Concomitant]
  3. ZYPREXA [Concomitant]
  4. TEGRETOL [Concomitant]
  5. KEPRA (LEVETIRACETAM) [Concomitant]
  6. ACTONEL [Suspect]
     Indication: PRODUCT USED FOR UNKNOWN INDICATION
     Dosage: 150 MG, TOOK FIRST DOSE, ORAL
     Route: 048
     Dates: start: 20110311, end: 20110312
  7. ANDROCUR (CYPROTERONE ACETATE) [Concomitant]
  8. ZOLOFT [Concomitant]
  9. PANTOPRAZOLE SODIUM [Concomitant]

REACTIONS (2)
  - GRAND MAL CONVULSION [None]
  - CONVULSION [None]
